FAERS Safety Report 10034282 (Version 2)
Quarter: 2014Q2

REPORT INFORMATION
  Report Type: Spontaneous
  Country: IT (occurrence: IT)
  Receive Date: 20140325
  Receipt Date: 20140408
  Transmission Date: 20141212
  Serious: Yes (Other)
  Sender: FDA-Public Use
  Company Number: IT-ACCORD-022644

PATIENT
  Age: 57 Year
  Sex: Male

DRUGS (4)
  1. IRINOTECAN [Suspect]
     Indication: COLON CANCER
     Route: 042
     Dates: start: 20080718
  2. LEDERFOLIN [Concomitant]
     Route: 042
  3. AVASTIN [Suspect]
     Indication: COLON CANCER
     Route: 042
     Dates: start: 20080718, end: 20081005
  4. FLUOROURACIL [Suspect]
     Indication: COLON CANCER
     Route: 042
     Dates: start: 20080718

REACTIONS (1)
  - Proteinuria [Recovered/Resolved]
